FAERS Safety Report 12446549 (Version 1)
Quarter: 2016Q2

REPORT INFORMATION
  Report Type: Spontaneous
  Country: US (occurrence: None)
  Receive Date: 20160607
  Receipt Date: 20160607
  Transmission Date: 20160815
  Serious: Yes (Other)
  Sender: FDA-Public Use
  Company Number: None

PATIENT
  Age: 55 Year
  Sex: Male
  Weight: 102.06 kg

DRUGS (7)
  1. ALEVE [Concomitant]
     Active Substance: NAPROXEN SODIUM
  2. XARELTO [Concomitant]
     Active Substance: RIVAROXABAN
  3. TRAMADOL. [Concomitant]
     Active Substance: TRAMADOL
  4. KEYTRUDA [Suspect]
     Active Substance: PEMBROLIZUMAB
     Indication: METASTATIC MALIGNANT MELANOMA
     Route: 042
     Dates: start: 20150708
  5. SYNTHROID [Concomitant]
     Active Substance: LEVOTHYROXINE SODIUM
  6. LIDOCAINE. [Concomitant]
     Active Substance: LIDOCAINE
  7. TYLENOL [Concomitant]
     Active Substance: ACETAMINOPHEN

REACTIONS (4)
  - Gait disturbance [None]
  - Dyspnoea exertional [None]
  - Haemoglobin decreased [None]
  - Dyspnoea [None]

NARRATIVE: CASE EVENT DATE: 20160601
